FAERS Safety Report 12874194 (Version 2)
Quarter: 2016Q4

REPORT INFORMATION
  Report Type: Spontaneous
  Country: US (occurrence: US)
  Receive Date: 20161021
  Receipt Date: 20161123
  Transmission Date: 20170207
  Serious: Yes (Other)
  Sender: FDA-Public Use
  Company Number: US-GLAXOSMITHKLINE-US2016153901

PATIENT
  Age: 73 Year
  Sex: Female

DRUGS (4)
  1. TRANSDERM SCOP [Suspect]
     Active Substance: SCOPOLAMINE
     Dosage: UNK
  2. TRANSDERM SCOP [Suspect]
     Active Substance: SCOPOLAMINE
     Dosage: UNK
  3. ANTIVERT [Concomitant]
     Active Substance: MECLIZINE HYDROCHLORIDE
     Indication: DIZZINESS
     Dosage: UNK
  4. TRANSDERM SCOP [Suspect]
     Active Substance: SCOPOLAMINE
     Indication: MOTION SICKNESS
     Dosage: UNK
     Dates: start: 2013

REACTIONS (7)
  - Off label use [Unknown]
  - Product quality issue [Unknown]
  - Drug administered at inappropriate site [Unknown]
  - Drug dependence [Unknown]
  - Dizziness [Unknown]
  - Feeling abnormal [Unknown]
  - Incorrect drug administration duration [Unknown]
